FAERS Safety Report 13383406 (Version 12)
Quarter: 2018Q2

REPORT INFORMATION
  Report Type: Report from Study
  Country: CR (occurrence: CR)
  Receive Date: 20170329
  Receipt Date: 20180610
  Transmission Date: 20180711
  Serious: Yes (Other)
  Sender: FDA-Public Use
  Company Number: PHHY2016CR078441

PATIENT
  Age: 32 Year
  Sex: Female
  Weight: 68.3 kg

DRUGS (7)
  1. AFINITOR [Suspect]
     Active Substance: EVEROLIMUS
     Indication: RENAL NEOPLASM
     Dosage: 10 MG, QD
     Route: 048
     Dates: start: 20160227
  2. AMLODIPINE [Concomitant]
     Active Substance: AMLODIPINE BESYLATE
     Indication: HYPERTENSION
     Dosage: 5 MG, QD
     Route: 048
  3. ATENOLOL. [Concomitant]
     Active Substance: ATENOLOL
     Indication: PRODUCT USED FOR UNKNOWN INDICATION
     Dosage: 50 MG, QD
     Route: 048
  4. CARBAMAZEPINE. [Interacting]
     Active Substance: CARBAMAZEPINE
     Indication: PRODUCT USED FOR UNKNOWN INDICATION
     Dosage: UNK
     Route: 065
     Dates: end: 20160518
  5. IRBESARTAN. [Suspect]
     Active Substance: IRBESARTAN
     Indication: PRODUCT USED FOR UNKNOWN INDICATION
     Dosage: 150 MG, QD
     Route: 065
  6. ACIDO FOLICO//FOLIC ACID [Concomitant]
     Active Substance: FOLIC ACID
     Indication: PRODUCT USED FOR UNKNOWN INDICATION
     Dosage: 1 DF, QD
     Route: 048
  7. GEMFIBROZIL. [Concomitant]
     Active Substance: GEMFIBROZIL
     Indication: PRODUCT USED FOR UNKNOWN INDICATION
     Dosage: 900 MG, QD
     Route: 048

REACTIONS (51)
  - Tonic convulsion [Recovered/Resolved]
  - Joint swelling [Not Recovered/Not Resolved]
  - Peripheral vascular disorder [Unknown]
  - Pain [Unknown]
  - Anxiety [Unknown]
  - Ear pain [Unknown]
  - Parotitis [Recovered/Resolved]
  - Infection [Unknown]
  - Haemoglobin decreased [Unknown]
  - Adrenal cyst [Unknown]
  - Thyroid hormones decreased [Unknown]
  - Mass [Unknown]
  - Weight decreased [Not Recovered/Not Resolved]
  - Diarrhoea [Recovered/Resolved]
  - Intentional product misuse [Unknown]
  - Focal dyscognitive seizures [Recovered/Resolved]
  - Gallbladder enlargement [Unknown]
  - Choking [Unknown]
  - Epilepsy [Unknown]
  - Thirst [Unknown]
  - Lipoma [Unknown]
  - Liver disorder [Unknown]
  - Menstruation delayed [Unknown]
  - Single functional kidney [Unknown]
  - Somnolence [Recovered/Resolved]
  - Malaise [Unknown]
  - Diarrhoea [Not Recovered/Not Resolved]
  - Dysphonia [Unknown]
  - Eye disorder [Unknown]
  - Oedema peripheral [Recovering/Resolving]
  - Blood creatinine increased [Unknown]
  - Nasopharyngitis [Unknown]
  - Renal cyst [Unknown]
  - Influenza [Recovering/Resolving]
  - Fatigue [Not Recovered/Not Resolved]
  - Blood pressure increased [Unknown]
  - Cough [Not Recovered/Not Resolved]
  - Aphthous ulcer [Unknown]
  - Gastritis [Unknown]
  - Angiomyolipoma [Unknown]
  - Renal mass [Unknown]
  - Blood urea increased [Unknown]
  - Gait inability [Unknown]
  - Thyroid disorder [Unknown]
  - Anaemia [Unknown]
  - Drug interaction [Unknown]
  - Pyrexia [Unknown]
  - Renal impairment [Unknown]
  - Skin discolouration [Unknown]
  - Peripheral swelling [Recovered/Resolved]
  - Decreased appetite [Unknown]

NARRATIVE: CASE EVENT DATE: 20160525
